FAERS Safety Report 4326566-8 (Version None)
Quarter: 2004Q1

REPORT INFORMATION
  Report Type: 
  Country: None (occurrence: None)
  Receive Date: 20040325
  Receipt Date: 20031118
  Transmission Date: 20041129
  Serious: Yes (Hospitalization)
  Sender: FDA-Public Use
  Company Number: US057186

PATIENT
  Age: 46 Year
  Sex: Female

DRUGS (4)
  1. NEULASTA [Suspect]
     Indication: CHEMOTHERAPY
     Dosage: AFTER CHEMO
  2. EPOETIN ALFA [Concomitant]
  3. DOXORUBICIN HYDROCHLORIDE [Concomitant]
  4. CYCLOPHOSPHAMIDE [Concomitant]

REACTIONS (3)
  - BONE PAIN [None]
  - HEADACHE [None]
  - LEUKOCYTOSIS [None]
